FAERS Safety Report 12267274 (Version 2)
Quarter: 2016Q2

REPORT INFORMATION
  Report Type: Report from Study
  Country: MX (occurrence: MX)
  Receive Date: 20160414
  Receipt Date: 20160511
  Transmission Date: 20160815
  Serious: No
  Sender: FDA-Public Use
  Company Number: PHHY2016MX048210

PATIENT
  Age: 5 Year
  Sex: Male

DRUGS (3)
  1. TRILEPTAL [Suspect]
     Active Substance: OXCARBAZEPINE
     Indication: SPEECH DISORDER
     Dosage: 6 ML, Q12H
     Route: 048
     Dates: start: 20160220
  2. NOOTROPIL [Concomitant]
     Active Substance: PIRACETAM
     Indication: PRODUCT USED FOR UNKNOWN INDICATION
     Dosage: 5 ML, Q12H
     Route: 065
  3. TRILEPTAL [Suspect]
     Active Substance: OXCARBAZEPINE
     Indication: DYSPRAXIA

REACTIONS (2)
  - Depressed mood [Unknown]
  - Product use issue [Unknown]

NARRATIVE: CASE EVENT DATE: 20160220
